FAERS Safety Report 9054562 (Version 3)
Quarter: 2013Q2

REPORT INFORMATION
  Report Type: Spontaneous
  Country: GB (occurrence: GB)
  Receive Date: 20130208
  Receipt Date: 20130510
  Transmission Date: 20140414
  Serious: Yes (Other)
  Sender: FDA-Public Use
  Company Number: GB-AMGEN-GBRSP2013007519

PATIENT
  Age: 17 Month
  Sex: Male

DRUGS (2)
  1. EPOETIN ALFA [Suspect]
     Indication: NEPHROGENIC ANAEMIA
     Dosage: UNK
     Dates: end: 20121126
  2. ARANESP [Suspect]
     Indication: NEPHROGENIC ANAEMIA
     Dosage: 15 MUG, UNK
     Route: 042
     Dates: start: 20130107

REACTIONS (3)
  - Haemoglobin decreased [Not Recovered/Not Resolved]
  - Anti-erythropoietin antibody positive [Unknown]
  - Drug ineffective [Unknown]
